FAERS Safety Report 7347281-2 (Version None)
Quarter: 2011Q1

REPORT INFORMATION
  Report Type: 
  Country: None (occurrence: None)
  Receive Date: 20110311
  Receipt Date: 20110308
  Transmission Date: 20110831
  Serious: No
  Sender: FDA-Public Use
  Company Number: US-PFIZER INC-2011052218

PATIENT
  Sex: Male
  Weight: 74.83 kg

DRUGS (2)
  1. PANTOPRAZOLE [Suspect]
     Indication: GASTROOESOPHAGEAL REFLUX DISEASE
     Dosage: UNK
     Dates: start: 20110112, end: 20110220
  2. KEPPRA [Concomitant]
     Indication: CONVULSION
     Dosage: 250 MG, 1X/DAY
     Route: 048

REACTIONS (2)
  - DIARRHOEA [None]
  - MEDICATION ERROR [None]
